FAERS Safety Report 19190255 (Version 3)
Quarter: 2021Q2

REPORT INFORMATION
  Report Type: Report from Study
  Country: CA (occurrence: CA)
  Receive Date: 20210428
  Receipt Date: 20210518
  Transmission Date: 20210717
  Serious: Yes (Death)
  Sender: FDA-Public Use
  Company Number: CA-PFIZER INC-2021455467

PATIENT
  Age: 76 Year
  Sex: Female

DRUGS (14)
  1. PREDNISONE. [Suspect]
     Active Substance: PREDNISONE
     Indication: GASTROINTESTINAL LYMPHOMA
     Dosage: 50 MG, ALTERNATE DAY DAY X 6 WEEKS
  2. VINCRISTINE [Suspect]
     Active Substance: VINCRISTINE
     Indication: GASTROINTESTINAL LYMPHOMA
  3. KETOCONAZOLE. [Concomitant]
     Active Substance: KETOCONAZOLE
     Dosage: 200 MG, DAILY
  4. DOXORUBICIN HCL [Suspect]
     Active Substance: DOXORUBICIN HYDROCHLORIDE
     Indication: NON-HODGKIN^S LYMPHOMA
     Dosage: 40 MG/M2, FOR WEEK 1,3,5,7,9,11
     Route: 042
  5. PREDNISONE. [Suspect]
     Active Substance: PREDNISONE
     Indication: NON-HODGKIN^S LYMPHOMA
     Dosage: 50 MG, DAILY X 6 WEEKS
  6. ETOPOSIDE. [Suspect]
     Active Substance: ETOPOSIDE
     Indication: GASTROINTESTINAL LYMPHOMA
     Dosage: 160 MG/M2, DAY 2 FOR WEEK 1,3,5,7,9,11
     Route: 048
  7. COTRIMOXAZOLE [Concomitant]
     Active Substance: SULFAMETHOXAZOLE\TRIMETHOPRIM
     Dosage: UNK, 2X/DAY (1 DS)
  8. BLEOMYCIN [Suspect]
     Active Substance: BLEOMYCIN SULFATE
     Indication: GASTROINTESTINAL LYMPHOMA
  9. VINCRISTINE [Suspect]
     Active Substance: VINCRISTINE
     Indication: NON-HODGKIN^S LYMPHOMA
     Dosage: 1.0 MG/M2, CYCLIC (MAX 2 MG) FOR WEEK 2,4,6,8,10,12
     Route: 042
  10. ETOPOSIDE. [Suspect]
     Active Substance: ETOPOSIDE
     Indication: NON-HODGKIN^S LYMPHOMA
     Dosage: 80 MG/M2, DAY 1 FOR WEEK 1,3,5,7,9,11
     Route: 042
  11. CIMETIDINE [Concomitant]
     Active Substance: CIMETIDINE
     Dosage: 600 MG, 2X/DAY
  12. DOXORUBICIN HCL [Suspect]
     Active Substance: DOXORUBICIN HYDROCHLORIDE
     Indication: GASTROINTESTINAL LYMPHOMA
  13. BLEOMYCIN [Suspect]
     Active Substance: BLEOMYCIN SULFATE
     Indication: NON-HODGKIN^S LYMPHOMA
     Dosage: 5 UNITS/M2, FOR WEEK 2,4,6,8,10,12
     Route: 042
  14. HYDROCORTISONE. [Concomitant]
     Active Substance: HYDROCORTISONE
     Dosage: 100 MG
     Route: 042

REACTIONS (1)
  - Pneumonia [Fatal]
